FAERS Safety Report 5941284-8 (Version None)
Quarter: 2008Q4

REPORT INFORMATION
  Report Type: 
  Country: None (occurrence: None)
  Receive Date: 20081103
  Receipt Date: 20081103
  Transmission Date: 20090506
  Serious: Yes (Life-Threatening, Hospitalization)
  Sender: FDA-Public Use
  Company Number: None

PATIENT
  Age: 65 Year
  Sex: Female
  Weight: 49.9 kg

DRUGS (1)
  1. DAPSONE [Suspect]
     Indication: PROPHYLAXIS
     Dosage: 100 MG DAILY PO
     Route: 048
     Dates: start: 20080601, end: 20080917

REACTIONS (2)
  - DYSPNOEA [None]
  - METHAEMOGLOBINAEMIA [None]
